FAERS Safety Report 10936374 (Version 1)
Quarter: 2015Q1

REPORT INFORMATION
  Report Type: Spontaneous
  Country: US (occurrence: None)
  Receive Date: 20150212
  Receipt Date: 20150212
  Transmission Date: 20150721
  Serious: No
  Sender: FDA-Public Use
  Company Number: TPA2010A02395

PATIENT
  Age: 87 Year
  Sex: Male
  Weight: 65.77 kg

DRUGS (14)
  1. DICLOFENAC XL (DICLOFENAC) [Concomitant]
  2. STRESSTABS (VITAMINS NOS) [Concomitant]
  3. ERYTHROMYCIN. [Concomitant]
     Active Substance: ERYTHROMYCIN
  4. CARDURA [Concomitant]
     Active Substance: DOXAZOSIN MESYLATE
  5. ULORIC [Suspect]
     Active Substance: FEBUXOSTAT
     Indication: GOUT
     Route: 048
     Dates: start: 20091014, end: 20110118
  6. NIFEDIPINE XL (NIFEDIPINE) [Concomitant]
  7. TRIVOCAN (ALL OTHER THERAPEUTIC PRODUCTS) (EYE DROPS) [Concomitant]
  8. METOPROLOL [Concomitant]
     Active Substance: METOPROLOL
  9. CLONIDINE. [Concomitant]
     Active Substance: CLONIDINE
  10. COLCHICINE. [Concomitant]
     Active Substance: COLCHICINE
  11. THERAGRAN M (VITAMINS NOS, MINERALS NOS) [Concomitant]
  12. ATENOLOL. [Concomitant]
     Active Substance: ATENOLOL
  13. VITAMIN D (ERGOCALCIFEROL) [Concomitant]
     Active Substance: ERGOCALCIFEROL
  14. LASIX [Concomitant]
     Active Substance: FUROSEMIDE

REACTIONS (8)
  - Blood pressure decreased [None]
  - Respiratory tract congestion [None]
  - Heart rate decreased [None]
  - Gout [None]
  - Joint swelling [None]
  - Laryngitis [None]
  - Cough [None]
  - Blood creatinine increased [None]

NARRATIVE: CASE EVENT DATE: 2009
